FAERS Safety Report 18118991 (Version 2)
Quarter: 2020Q3

REPORT INFORMATION
  Report Type: Report from Study
  Country: ES (occurrence: ES)
  Receive Date: 20200806
  Receipt Date: 20200812
  Transmission Date: 20201103
  Serious: Yes (Life-Threatening)
  Sender: FDA-Public Use
  Company Number: ES-ROCHE-2651651

PATIENT
  Age: 34 Year
  Sex: Male
  Weight: 57 kg

DRUGS (6)
  1. OCRELIZUMAB. [Suspect]
     Active Substance: OCRELIZUMAB
     Indication: RELAPSING-REMITTING MULTIPLE SCLEROSIS
     Dosage: DATE OF MOST RECENT DOSE OF OCRELIZUMAB PRIOR TO THIS EVENT ONSET: 12/FEB/2020
     Route: 042
     Dates: start: 20190313
  2. METHYLPREDNISOLONE. [Suspect]
     Active Substance: METHYLPREDNISOLONE
     Indication: PREMEDICATION
     Dosage: SUBSEQUENT DATES OF ADMINISTRATION: 29/MAR//2019, 28/AUG/2019, 12/FEB/2020
     Route: 042
     Dates: start: 20190313
  3. HIDROFEROL [Concomitant]
     Active Substance: CALCIFEDIOL
     Indication: PROPHYLAXIS
     Dosage: 266 (OTHER)
     Route: 048
     Dates: start: 20190203
  4. CETRIZINE [Concomitant]
     Active Substance: CETIRIZINE HYDROCHLORIDE
     Indication: PREMEDICATION
     Dosage: SUBSEQUENT DATES OF ADMINISTRATION: 29/MAR//2019, 28/AUG/2019, 12/FEB/2020
     Route: 048
     Dates: start: 20190313
  5. SIMVASTATINA [Concomitant]
     Active Substance: SIMVASTATIN
     Route: 048
  6. PARACETAMOL [Concomitant]
     Active Substance: ACETAMINOPHEN
     Indication: PREMEDICATION
     Dosage: SUBSEQUENT DATES OF ADMINISTRATION: 29/MAR//2019, 28/AUG/2019, 12/FEB/2020
     Route: 048
     Dates: start: 20190313

REACTIONS (1)
  - Neutrophil count decreased [Recovered/Resolved]

NARRATIVE: CASE EVENT DATE: 20200308
